FAERS Safety Report 16321449 (Version 1)
Quarter: 2019Q2

REPORT INFORMATION
  Report Type: Spontaneous
  Country: US (occurrence: US)
  Receive Date: 20190516
  Receipt Date: 20190516
  Transmission Date: 20190711
  Serious: No
  Sender: FDA-Public Use
  Company Number: US-MTPC-MTDA2019-0005208

PATIENT

DRUGS (2)
  1. RADICAVA [Suspect]
     Active Substance: EDARAVONE
     Indication: AMYOTROPHIC LATERAL SCLEROSIS
     Dosage: UNK UNK, QD
     Route: 042
     Dates: start: 20190120, end: 20190203
  2. RILUZOLE. [Concomitant]
     Active Substance: RILUZOLE
     Dosage: 50 MILLIGRAM, BID
     Route: 065
     Dates: start: 20161012

REACTIONS (2)
  - Muscular weakness [Recovering/Resolving]
  - Hypersensitivity [Unknown]

NARRATIVE: CASE EVENT DATE: 20190124
